FAERS Safety Report 8874484 (Version 3)
Quarter: 2013Q1

REPORT INFORMATION
  Report Type: Spontaneous
  Country: NO (occurrence: NO)
  Receive Date: 20121031
  Receipt Date: 20130113
  Transmission Date: 20140127
  Serious: Yes (Other)
  Sender: FDA-Public Use
  Company Number: NO-AMGEN-NORSP2012067897

PATIENT
  Age: 48 Year
  Sex: Female

DRUGS (5)
  1. VECTIBIX [Suspect]
     Indication: COLON CANCER METASTATIC
     Dosage: 336 MG, UNK
     Route: 042
     Dates: start: 20120807
  2. TETRALYSAL                         /00001701/ [Concomitant]
     Dosage: UNK
     Dates: start: 2012
  3. DOXICYCLINE                        /00055701/ [Concomitant]
     Dosage: UNK
     Dates: start: 201208
  4. FLUOROURACIL [Concomitant]
     Indication: COLON CANCER METASTATIC
     Dosage: UNK
     Dates: start: 20120807
  5. IRINOTECAN [Concomitant]
     Indication: COLON CANCER METASTATIC
     Dosage: UNK
     Dates: start: 20120807

REACTIONS (8)
  - Skin exfoliation [Recovered/Resolved]
  - Pain of skin [Recovered/Resolved]
  - Skin tightness [Recovered/Resolved]
  - Dry skin [Recovered/Resolved]
  - Eye pain [Recovered/Resolved]
  - Eye discharge [Recovered/Resolved]
  - Eyelid disorder [Recovered/Resolved]
  - Nail bed disorder [Recovering/Resolving]
